FAERS Safety Report 8987475 (Version 1)
Quarter: 2012Q4

REPORT INFORMATION
  Report Type: 
  Country: BE (occurrence: BE)
  Receive Date: 20121227
  Receipt Date: 20121227
  Transmission Date: 20130627
  Serious: Yes (Hospitalization)
  Sender: FDA-Public Use
  Company Number: BE-PFIZER INC-2012325390

PATIENT
  Age: 63 Year
  Sex: Female

DRUGS (10)
  1. LINEZOLID [Suspect]
     Indication: WOUND INFECTION STAPHYLOCOCCAL
     Dosage: 600 mg, 2x/day
  2. RIFAMPICIN [Concomitant]
     Indication: WOUND INFECTION STAPHYLOCOCCAL
     Dosage: 600 mg, 1x/day
  3. CIPROFLOXACIN [Concomitant]
     Indication: WOUND INFECTION
  4. CLONIDINE [Concomitant]
     Indication: WOUND INFECTION
  5. BISOPROLOL [Concomitant]
     Indication: WOUND INFECTION
  6. AMLODIPINE [Concomitant]
     Indication: WOUND INFECTION
  7. PANTOPRAZOL [Concomitant]
     Indication: WOUND INFECTION
  8. METOCLOPRAMIDE [Concomitant]
     Indication: WOUND INFECTION
  9. LORAZEPAM [Concomitant]
     Indication: WOUND INFECTION
  10. NADROPARIN [Concomitant]
     Indication: WOUND INFECTION

REACTIONS (6)
  - Blindness [Not Recovered/Not Resolved]
  - Metabolic acidosis [Unknown]
  - Hyperlactacidaemia [Recovered/Resolved]
  - Renal failure [Recovering/Resolving]
  - Disorientation [Not Recovered/Not Resolved]
  - Myopathy [Unknown]
